FAERS Safety Report 7014698-5 (Version None)
Quarter: 2010Q3

REPORT INFORMATION
  Report Type: 
  Country: None (occurrence: None)
  Receive Date: 20100927
  Receipt Date: 20100913
  Transmission Date: 20110219
  Serious: Yes (Other)
  Sender: FDA-Public Use
  Company Number: PHHY2010US60553

PATIENT
  Sex: Female

DRUGS (4)
  1. FEMARA [Suspect]
     Dosage: UNK
  2. TAMOXIFEN CITRATE [Concomitant]
  3. ARIMIDEX [Concomitant]
     Dosage: UNK
  4. CALCITONIN-SALMON [Concomitant]

REACTIONS (4)
  - ALOPECIA [None]
  - APPENDICECTOMY [None]
  - SURGERY [None]
  - WEIGHT INCREASED [None]
